FAERS Safety Report 17664087 (Version 1)
Quarter: 2020Q2

REPORT INFORMATION
  Report Type: Spontaneous
  Country: US (occurrence: US)
  Receive Date: 20200414
  Receipt Date: 20200414
  Transmission Date: 20200713
  Serious: No
  Sender: FDA-Public Use
  Company Number: US-ALLERGAN-2009228US

PATIENT
  Sex: Male

DRUGS (2)
  1. UBRELVY [Suspect]
     Active Substance: UBROGEPANT
     Indication: MIGRAINE
     Dosage: 50 MG
     Route: 048
     Dates: start: 20200222, end: 20200224
  2. COUMADIN [Concomitant]
     Active Substance: WARFARIN SODIUM

REACTIONS (6)
  - Lip blister [Recovered/Resolved]
  - Lip pain [Recovered/Resolved]
  - Lip erythema [Recovered/Resolved]
  - Tongue erythema [Recovered/Resolved]
  - Pruritus [Recovered/Resolved]
  - Glossodynia [Recovered/Resolved]
